FAERS Safety Report 23091583 (Version 2)
Quarter: 2023Q4

REPORT INFORMATION
  Report Type: Spontaneous
  Country: US (occurrence: US)
  Receive Date: 20231020
  Receipt Date: 20231031
  Transmission Date: 20240110
  Serious: Yes (Death, Hospitalization)
  Sender: FDA-Public Use
  Company Number: US-MALLINCKRODT-MNK202305100

PATIENT
  Age: 17 Year
  Sex: Female

DRUGS (4)
  1. NITRIC OXIDE [Suspect]
     Active Substance: NITRIC OXIDE
     Indication: Pulmonary hypertension
     Dosage: UNKNOWN
     Route: 055
  2. MILRINONE [Concomitant]
     Active Substance: MILRINONE
     Indication: Pulmonary hypertension
     Dosage: UNKNOWN
  3. SILDENAFIL [Concomitant]
     Active Substance: SILDENAFIL
     Indication: Pulmonary hypertension
     Dosage: UNKNOWN
  4. LEVOFLOXACIN [Concomitant]
     Active Substance: LEVOFLOXACIN
     Indication: Pulmonary embolism
     Dosage: UNKNOWN

REACTIONS (5)
  - Multiple organ dysfunction syndrome [Fatal]
  - Pulmonary hypertensive crisis [Unknown]
  - Cardiac arrest [Unknown]
  - Pulmonary tumour thrombotic microangiopathy [Unknown]
  - Product use issue [Unknown]
